FAERS Safety Report 6690062-3 (Version None)
Quarter: 2010Q2

REPORT INFORMATION
  Report Type: 
  Country: None (occurrence: None)
  Receive Date: 20100421
  Receipt Date: 20100413
  Transmission Date: 20101027
  Serious: Yes (Hospitalization, Other)
  Sender: FDA-Public Use
  Company Number: PHHY2010NO22625

PATIENT
  Sex: Female

DRUGS (8)
  1. EXELON [Suspect]
     Dosage: 4.6 MG, QD
     Route: 062
  2. IBUX [Suspect]
     Indication: PELVIC PAIN
     Dosage: 400 MG, BID
     Route: 048
     Dates: start: 20100129, end: 20100326
  3. PREDNISOLON [Suspect]
     Route: 048
  4. NICOTINELL [Concomitant]
     Dosage: 21 MG, QD
     Route: 062
  5. SOBRIL [Concomitant]
     Route: 048
  6. PARACET [Concomitant]
     Route: 048
  7. TOILAX [Concomitant]
     Dosage: GIVEN MONDAY, THURSDAY AND SATURDAY
  8. LEPONEX ^WANDER^ [Concomitant]
     Route: 048

REACTIONS (8)
  - BLOOD ALKALINE PHOSPHATASE INCREASED [None]
  - DELIRIUM [None]
  - DUODENAL ULCER [None]
  - GASTRIC ULCER [None]
  - GENERAL PHYSICAL HEALTH DETERIORATION [None]
  - HAEMATOCHEZIA [None]
  - HAEMOGLOBIN DECREASED [None]
  - URINARY TRACT INFECTION [None]
